FAERS Safety Report 13299866 (Version 2)
Quarter: 2017Q1

REPORT INFORMATION
  Report Type: Spontaneous
  Country: NZ (occurrence: NZ)
  Receive Date: 20170306
  Receipt Date: 20170322
  Transmission Date: 20170428
  Serious: Yes (Death)
  Sender: FDA-Public Use
  Company Number: NZ-ABBVIE-17P-118-1892561-00

PATIENT
  Age: 61 Year
  Sex: Male
  Weight: 68.2 kg

DRUGS (3)
  1. RIBAVIRIN. [Suspect]
     Active Substance: RIBAVIRIN
     Indication: HEPATITIS C
     Dosage: ON TREATMENT FOR APPROXIMATELY 6 WEEKS
     Route: 048
     Dates: start: 20161116
  2. VIEKIRA PAK [Suspect]
     Active Substance: DASABUVIR\OMBITASVIR\PARITAPREVIR\RITONAVIR
     Indication: HEPATITIS C
     Dosage: ON TREATMENT FOR APPROXIMATELY 6 WEEKS
     Route: 048
     Dates: start: 20161116
  3. SALAIR [Concomitant]
     Indication: WHEEZING
     Route: 055

REACTIONS (4)
  - Dyspnoea [Unknown]
  - Sudden death [Fatal]
  - Cholelithiasis [Unknown]
  - Fatigue [Unknown]

NARRATIVE: CASE EVENT DATE: 20161222
